FAERS Safety Report 7044878-4 (Version None)
Quarter: 2010Q4

REPORT INFORMATION
  Report Type: 
  Country: None (occurrence: None)
  Receive Date: 20101014
  Receipt Date: 20101011
  Transmission Date: 20110411
  Serious: Yes (Hospitalization)
  Sender: FDA-Public Use
  Company Number: PHHO2010US13851

PATIENT
  Sex: Male
  Weight: 114.29 kg

DRUGS (4)
  1. BLINDED ACZ885 ACZ+ [Suspect]
     Indication: GOUT
     Dosage: DOUBLE BLIND
     Dates: start: 20100420
  2. BLINDED NO TREATMENT RECEIVED NOMED [Suspect]
     Indication: GOUT
     Dosage: DOUBLE BLIND
     Dates: start: 20100420
  3. BLINDED TRIAMCINOLONE ACETONIDE COMP-TRI+ [Suspect]
     Indication: GOUT
     Dosage: DOUBLE BLIND
     Dates: start: 20100420
  4. ALLOPURINOL [Concomitant]
     Indication: GOUT

REACTIONS (8)
  - ABSCESS LIMB [None]
  - CELLULITIS [None]
  - NAUSEA [None]
  - PURULENT DISCHARGE [None]
  - PYREXIA [None]
  - WOUND [None]
  - WOUND COMPLICATION [None]
  - WOUND INFECTION STAPHYLOCOCCAL [None]
